FAERS Safety Report 15762579 (Version 1)
Quarter: 2018Q4

REPORT INFORMATION
  Report Type: Spontaneous
  Country: FR (occurrence: FR)
  Receive Date: 20181226
  Receipt Date: 20181226
  Transmission Date: 20190205
  Serious: Yes (Hospitalization)
  Sender: FDA-Public Use
  Company Number: FR-PFIZER INC-2018519826

PATIENT
  Age: 63 Year
  Sex: Male
  Weight: 53 kg

DRUGS (30)
  1. CARBOPLATIN. [Suspect]
     Active Substance: CARBOPLATIN
     Indication: SQUAMOUS CELL CARCINOMA OF HEAD AND NECK
     Dosage: 410 MG, CYCLIC (D1)
     Route: 042
     Dates: start: 20180731, end: 20181122
  2. PRIMPERAN [Suspect]
     Active Substance: METOCLOPRAMIDE HYDROCHLORIDE
     Indication: ANTIEMETIC SUPPORTIVE CARE
     Dosage: 10 MG, CYCLIC (D2, D3, D4)
     Route: 048
     Dates: start: 20180801
  3. POLARAMINE [Suspect]
     Active Substance: DEXCHLORPHENIRAMINE MALEATE
     Indication: ALLERGY PROPHYLAXIS
     Dosage: 5 MG, CYCLIC (D1)
     Route: 042
     Dates: start: 20180731, end: 20181122
  4. BACTRIM [Concomitant]
     Active Substance: SULFAMETHOXAZOLE\TRIMETHOPRIM
     Indication: INFECTION
     Dosage: 800 MG, 1X/DAY
     Route: 048
     Dates: start: 20180907
  5. IMOVANE [Concomitant]
     Active Substance: ZOPICLONE
     Indication: INSOMNIA
     Dosage: 7.5 MG, 1X/DAY (0-0-0-1)
     Route: 048
     Dates: start: 20181009
  6. DOLIPRANE [Concomitant]
     Active Substance: ACETAMINOPHEN
     Indication: PAIN
     Dosage: 3 G, DAILY  (1-1-1)
     Route: 048
     Dates: start: 20180821
  7. FLUOROURACIL. [Suspect]
     Active Substance: FLUOROURACIL
     Indication: SQUAMOUS CELL CARCINOMA OF HEAD AND NECK
     Dosage: 1650 MG, CYCLIC (D1, D2, D2, D4)
     Route: 042
     Dates: start: 20180731, end: 20181125
  8. ALPRAZOLAM. [Suspect]
     Active Substance: ALPRAZOLAM
     Indication: ANXIETY
     Dosage: 0.5 MG, DAILY  (1-0-1)
     Route: 048
     Dates: start: 20180530
  9. CYMBALTA [Suspect]
     Active Substance: DULOXETINE HYDROCHLORIDE
     Indication: ANXIETY
     Dosage: 30 MG, 1X/DAY (0-0-1)
     Route: 048
     Dates: start: 20180821
  10. CORTANCYL [Suspect]
     Active Substance: PREDNISONE
     Indication: PROPHYLAXIS AGAINST TRANSPLANT REJECTION
     Dosage: 5 MG, 1X/DAY (1-0-0)
     Route: 048
     Dates: start: 2009
  11. AZANTAC [Suspect]
     Active Substance: RANITIDINE HYDROCHLORIDE
     Indication: GASTROOESOPHAGEAL REFLUX DISEASE
     Dosage: 50 MG, CYCLIC
     Route: 042
     Dates: start: 20180731, end: 20181122
  12. ALPRAZOLAM. [Concomitant]
     Active Substance: ALPRAZOLAM
     Indication: METABOLIC ACIDOSIS
     Dosage: 2000 MG, DAILY (2-2-2-2)
     Route: 048
     Dates: start: 20130612
  13. ZELITREX [Concomitant]
     Active Substance: VALACYCLOVIR HYDROCHLORIDE
     Indication: HERPES ZOSTER
     Dosage: 1000 MG, DAILY (1-0-1)
     Route: 048
     Dates: start: 20180829
  14. PHOSPHONEUROS [Concomitant]
     Active Substance: CALCIUM PHOSPHATE, DIBASIC, ANHYDROUS\MAGNESIUM GLYCEROPHOSPHATE\PHOSPHORIC ACID\SODIUM PHOSPHATE, DIBASIC
     Indication: BLOOD PHOSPHORUS DECREASED
     Dosage: 50 GTT, DAILY (25-0-25 (DROPS))
     Route: 048
     Dates: start: 20180821
  15. UVEDOSE [Concomitant]
     Active Substance: CHOLECALCIFEROL
     Indication: VITAMIN D DEFICIENCY
     Dosage: 100000 IU, MONTHLY
     Route: 048
     Dates: start: 20130612, end: 20181114
  16. SULFARLEM [Concomitant]
     Active Substance: ANETHOLTRITHION
     Indication: APTYALISM
     Dosage: 150 MG, DAILY (2-2-2)
     Route: 048
     Dates: start: 20180620
  17. ZOPHREN [ONDANSETRON HYDROCHLORIDE] [Suspect]
     Active Substance: ONDANSETRON
     Indication: ANTIEMETIC SUPPORTIVE CARE
     Dosage: 8 MG, CYCLIC (D1)
     Route: 042
     Dates: start: 20180731
  18. ACTISKENAN [Suspect]
     Active Substance: MORPHINE SULFATE
     Indication: PAIN
     Dosage: 60 MG, 1X/DAY (10 MG SB 6/DAY)
     Route: 048
     Dates: start: 20180821
  19. CELLCEPT [Suspect]
     Active Substance: MYCOPHENOLATE MOFETIL\MYCOPHENOLATE MOFETIL HYDROCHLORIDE
     Indication: PROPHYLAXIS AGAINST TRANSPLANT REJECTION
     Dosage: 1000 MG, DAILY (1-0-1)
     Route: 048
     Dates: start: 2009
  20. LERCANIDIPINE ARROW GENERIQUES [Suspect]
     Active Substance: LERCANIDIPINE HYDROCHLORIDE
     Indication: HYPERTENSION
     Dosage: 10 MG, 1X/DAY (1-0-0)
     Route: 048
     Dates: start: 20140614
  21. TAREG [Suspect]
     Active Substance: VALSARTAN
     Indication: HYPERTENSION
     Dosage: 80 MG, 1X/DAY (0-1-0)
     Route: 048
     Dates: start: 20140423, end: 20181107
  22. MOVICOL [Concomitant]
     Active Substance: POLYETHYLENE GLYCOL 3350\POTASSIUM CHLORIDE\SODIUM BICARBONATE\SODIUM CHLORIDE
     Indication: CONSTIPATION
     Dosage: 2 DF, 1X/DAY (2-0-0 (SACHET))
     Route: 048
     Dates: start: 20180803
  23. ESOMEPRAZOLE (ESOMEPRAZOLE MAGNESIUM) [Suspect]
     Active Substance: ESOMEPRAZOLE MAGNESIUM
     Indication: GASTROOESOPHAGEAL REFLUX DISEASE
     Dosage: 20 MG, 1X/DAY (0-0-1)
     Route: 048
     Dates: start: 20130612, end: 20181107
  24. SKENAN [Suspect]
     Active Substance: MORPHINE SULFATE
     Indication: PAIN
     Dosage: 60 MG, DAILY (1-0-1)
     Route: 048
     Dates: start: 20180821
  25. KARDEGIC [Suspect]
     Active Substance: ASPIRIN DL-LYSINE
     Indication: PLATELET AGGREGATION
     Dosage: 75 MG, 1X/DAY (1-0-0)
     Route: 048
     Dates: start: 20131009
  26. PROGRAF [Suspect]
     Active Substance: TACROLIMUS\TACROLIMUS ANHYDROUS
     Indication: PROPHYLAXIS AGAINST TRANSPLANT REJECTION
     Dosage: 3 MG, 1X/DAY
     Route: 048
     Dates: start: 2009
  27. ERBITUX [Suspect]
     Active Substance: CETUXIMAB
     Indication: SQUAMOUS CELL CARCINOMA OF HEAD AND NECK
     Dosage: 415 MG, CYCLIC (415 MG D1 D8 D15)
     Route: 042
     Dates: start: 20180731, end: 20181122
  28. ATENOLOL ARROW [Concomitant]
     Active Substance: ATENOLOL
     Indication: HYPERTENSION
     Dosage: 75 MG, DAILY  (1-0-0.5)
     Route: 048
     Dates: start: 20130612
  29. SOLU-MEDROL [Suspect]
     Active Substance: METHYLPREDNISOLONE SODIUM SUCCINATE
     Indication: ALLERGY PROPHYLAXIS
     Dosage: 60 MG, CYCLIC (D1)
     Route: 042
     Dates: start: 20180731, end: 20181122
  30. XYLOCAINE VISQUEUS [Concomitant]
     Indication: ORAL PAIN
     Dosage: 4 DF, DAILY (1-1-1-1)
     Route: 048
     Dates: start: 20180821

REACTIONS (2)
  - Abdominal compartment syndrome [Recovering/Resolving]
  - Small intestinal obstruction [Recovering/Resolving]

NARRATIVE: CASE EVENT DATE: 20181108
